FAERS Safety Report 14786173 (Version 1)
Quarter: 2018Q2

REPORT INFORMATION
  Report Type: Spontaneous
  Country: FR (occurrence: FR)
  Receive Date: 20180420
  Receipt Date: 20180420
  Transmission Date: 20180711
  Serious: Yes (Other)
  Sender: FDA-Public Use
  Company Number: PHHY2018FR069587

PATIENT
  Age: 6 Year
  Sex: Female
  Weight: 23 kg

DRUGS (2)
  1. VANCOMYCIN SANDOZ [Suspect]
     Active Substance: VANCOMYCIN
     Indication: PYREXIA
     Dosage: 2 G, UNK (PERFUSION CONTINUE)
     Route: 041
     Dates: start: 20170616, end: 20170620
  2. CEFTAZIDIME PANPHARMA [Suspect]
     Active Substance: CEFTAZIDIME
     Indication: PYREXIA
     Dosage: 1.2 G, 6 HOURS (PERFUSION DE 15 MINS)
     Route: 041
     Dates: start: 20170616, end: 20170620

REACTIONS (2)
  - Localised oedema [Recovered/Resolved]
  - Administration site extravasation [Recovered/Resolved]

NARRATIVE: CASE EVENT DATE: 20170620
